FAERS Safety Report 5649884-X (Version None)
Quarter: 2008Q1

REPORT INFORMATION
  Report Type: 
  Country: None (occurrence: None)
  Receive Date: 20080304
  Receipt Date: 20080221
  Transmission Date: 20080703
  Serious: Yes (Hospitalization, Other)
  Sender: FDA-Public Use
  Company Number: DE-ELI_LILLY_AND_COMPANY-DE200802005722

PATIENT
  Sex: Male

DRUGS (15)
  1. CYMBALTA [Suspect]
     Indication: DIABETIC NEUROPATHY
     Dosage: 60 MG, 2/D
     Route: 065
  2. CYMBALTA [Suspect]
     Dosage: 60 MG, THREE TO FOUR TIMES DAILY
     Route: 065
  3. HUMALOG [Concomitant]
     Dosage: 5 U, EACH MORNING
     Route: 065
  4. HUMALOG [Concomitant]
     Dosage: 5 U MIDDAY
     Route: 065
  5. HUMALOG [Concomitant]
     Dosage: 4 U, EACH EVENING
     Route: 065
  6. HUMALOG [Concomitant]
     Dosage: UNK, UNKNOWN
     Route: 065
  7. DILATREND [Concomitant]
     Dosage: 25 MG, EACH MORNING
     Route: 065
  8. VESICARE [Concomitant]
     Dosage: 25 MG, EACH MORNING
     Route: 065
  9. VESICARE [Concomitant]
     Dosage: 5 MG, EACH MORNING
     Route: 065
  10. MESCORIT [Concomitant]
     Dosage: 850 MG, EACH MORNING
     Route: 065
  11. ACERCOMP [Concomitant]
     Dosage: UNK, EACH MORNING
     Route: 065
  12. TILIDIN [Concomitant]
     Dosage: 10 MG, 3/D
     Route: 065
  13. TILIDIN [Concomitant]
     Route: 065
  14. LANTUS [Concomitant]
     Dosage: 25 U, EACH EVENING
     Route: 065
  15. LANTUS [Concomitant]
     Dosage: 3.54 UNK, UNKNOWN
     Route: 065

REACTIONS (9)
  - DELIRIUM [None]
  - DISORIENTATION [None]
  - DISTURBANCE IN ATTENTION [None]
  - DIZZINESS [None]
  - GAIT DISTURBANCE [None]
  - HYPERGLYCAEMIA [None]
  - INTENTIONAL OVERDOSE [None]
  - MYOCLONUS [None]
  - RESTLESS LEGS SYNDROME [None]
